FAERS Safety Report 6196863-2 (Version None)
Quarter: 2009Q2

REPORT INFORMATION
  Report Type: 
  Country: None (occurrence: None)
  Receive Date: 20090518
  Receipt Date: 20090413
  Transmission Date: 20091009
  Serious: Yes (Hospitalization)
  Sender: FDA-Public Use
  Company Number: DSA_33654_2009

PATIENT
  Age: 84 Year
  Sex: Male

DRUGS (12)
  1. DILTIAZEM HCL [Suspect]
     Indication: DIABETES MELLITUS
     Dosage: (100 MG QD ORAL)
     Route: 048
     Dates: end: 20090406
  2. DILTIAZEM HCL [Suspect]
     Indication: HYPERTENSION
     Dosage: (100 MG QD ORAL)
     Route: 048
     Dates: end: 20090406
  3. NATRIX [Concomitant]
  4. RAMOSETRON HYDROCHLORIDE [Concomitant]
  5. CALBLOCK [Concomitant]
  6. ATELEC [Concomitant]
  7. TAKEPRON [Concomitant]
  8. AMARYL [Concomitant]
  9. BASEN [Concomitant]
  10. ACTOS [Concomitant]
  11. OLJESARTANMEDOXOMIL [Concomitant]
  12. ARTIST [Concomitant]

REACTIONS (8)
  - BLOOD PRESSURE DECREASED [None]
  - BRADYCARDIA [None]
  - BUNDLE BRANCH BLOCK RIGHT [None]
  - CHEST PAIN [None]
  - CIRCULATORY COLLAPSE [None]
  - DEPRESSED LEVEL OF CONSCIOUSNESS [None]
  - HYPERKALAEMIA [None]
  - TACHYCARDIA [None]
